FAERS Safety Report 8976293 (Version 2)
Quarter: 2013Q1

REPORT INFORMATION
  Report Type: Spontaneous
  Country: CA (occurrence: CA)
  Receive Date: 20121220
  Receipt Date: 20130225
  Transmission Date: 20140127
  Serious: Yes (Hospitalization)
  Sender: FDA-Public Use
  Company Number: PHHY2011CA104840

PATIENT
  Age: 64 Year
  Sex: Female

DRUGS (2)
  1. ACLASTA [Suspect]
     Indication: OSTEOPOROSIS
     Dosage: 5 MG, UNK
     Route: 042
     Dates: start: 20110210
  2. ACLASTA [Suspect]
     Dosage: 5 MG
     Route: 042
     Dates: start: 20120207

REACTIONS (4)
  - Chronic obstructive pulmonary disease [Recovered/Resolved]
  - Dyspnoea [Unknown]
  - Feeling cold [Recovered/Resolved]
  - Malaise [Unknown]
